FAERS Safety Report 5281279-3 (Version None)
Quarter: 2007Q1

REPORT INFORMATION
  Report Type: 
  Country: None (occurrence: None)
  Receive Date: 20061221
  Receipt Date: 20060525
  Transmission Date: 20070707
  Serious: No
  Sender: FDA-Public Use
  Company Number: SP00874

PATIENT

DRUGS (1)
  1. XIFAXAN [Suspect]
     Indication: DIARRHOEA
     Dosage: 600 MG/BID,ORAL
     Route: 048
     Dates: start: 20060522

REACTIONS (2)
  - ANAL DISCOMFORT [None]
  - PRURITUS ANI [None]
